FAERS Safety Report 17277513 (Version 1)
Quarter: 2020Q1

REPORT INFORMATION
  Report Type: Spontaneous
  Country: US (occurrence: US)
  Receive Date: 20191227
  Receipt Date: 20191227
  Transmission Date: 20200409
  Serious: Yes (Other)
  Sender: FDA-Public Use
  Company Number: None

PATIENT
  Age: 15 Year
  Sex: Male
  Weight: 52 kg

DRUGS (2)
  1. THC VAPE PEN [Suspect]
     Active Substance: .DELTA.8-TETRAHYDROCANNABINOL\DEVICE\HERBALS
  2. THC [Concomitant]
     Active Substance: DRONABINOL
     Dates: start: 20190701

REACTIONS (2)
  - Respiratory distress [None]
  - Asthma [None]

NARRATIVE: CASE EVENT DATE: 20191227
